FAERS Safety Report 18257866 (Version 1)
Quarter: 2020Q3

REPORT INFORMATION
  Report Type: Spontaneous
  Country: US (occurrence: US)
  Receive Date: 20200911
  Receipt Date: 20200911
  Transmission Date: 20201103
  Serious: Yes (Other)
  Sender: FDA-Public Use
  Company Number: None

PATIENT
  Age: 64 Year
  Sex: Female
  Weight: 112.2 kg

DRUGS (8)
  1. NOREPINEPHRINE. [Concomitant]
     Active Substance: NOREPINEPHRINE
     Dates: start: 20200903, end: 20200908
  2. GABAPENTIN. [Concomitant]
     Active Substance: GABAPENTIN
     Dates: start: 20200901, end: 20200910
  3. ENOXAPARIN [Concomitant]
     Active Substance: ENOXAPARIN
     Dates: start: 20200902, end: 20200904
  4. LORATIDINE [Concomitant]
     Active Substance: LORATADINE
     Dates: start: 20200901, end: 20200905
  5. PANTOPRAZOLE [Concomitant]
     Active Substance: PANTOPRAZOLE
     Dates: start: 20200901, end: 20200910
  6. PROPOFOL. [Concomitant]
     Active Substance: PROPOFOL
     Dates: start: 20200902, end: 20200908
  7. ASCORBIC ACID. [Concomitant]
     Active Substance: ASCORBIC ACID
     Dates: start: 20200903, end: 20200910
  8. REMDESIVIR. [Suspect]
     Active Substance: REMDESIVIR
     Indication: COVID-19
     Route: 042
     Dates: start: 20200902, end: 20200907

REACTIONS (2)
  - Bradycardia [None]
  - Hypertension [None]

NARRATIVE: CASE EVENT DATE: 20200903
